FAERS Safety Report 5588527-0 (Version None)
Quarter: 2008Q1

REPORT INFORMATION
  Report Type: 
  Country: None (occurrence: None)
  Receive Date: 20080111
  Receipt Date: 20080102
  Transmission Date: 20080703
  Serious: Yes (Hospitalization)
  Sender: FDA-Public Use
  Company Number: US-ASTRAZENECA-2008AC00050

PATIENT
  Age: 54 Year
  Sex: Male

DRUGS (2)
  1. QUETIAPINE [Suspect]
     Route: 048
  2. BUPROPION HCL [Concomitant]

REACTIONS (1)
  - ADRENAL INSUFFICIENCY [None]
